FAERS Safety Report 6665785-2 (Version None)
Quarter: 2010Q2

REPORT INFORMATION
  Report Type: 
  Country: None (occurrence: None)
  Receive Date: 20100402
  Receipt Date: 20100325
  Transmission Date: 20101027
  Serious: Yes (Other)
  Sender: FDA-Public Use
  Company Number: AU-AMGEN-US380510

PATIENT
  Sex: Female
  Weight: 30 kg

DRUGS (6)
  1. NPLATE [Suspect]
     Indication: IDIOPATHIC THROMBOCYTOPENIC PURPURA
     Route: 065
     Dates: start: 20090703, end: 20091103
  2. PREDNISOLONE [Concomitant]
     Route: 065
  3. NEUPOGEN [Concomitant]
     Route: 065
  4. IMMU-G [Concomitant]
     Route: 042
  5. VITAMIN D [Concomitant]
     Route: 065
  6. CALTRATE [Concomitant]
     Route: 065

REACTIONS (3)
  - DRUG INEFFECTIVE [None]
  - PLATELET COUNT DECREASED [None]
  - THERAPEUTIC RESPONSE DECREASED [None]
